FAERS Safety Report 19918401 (Version 3)
Quarter: 2021Q4

REPORT INFORMATION
  Report Type: Report from Study
  Country: AT (occurrence: None)
  Receive Date: 20211005
  Receipt Date: 20211101
  Transmission Date: 20220303
  Serious: Yes (Death)
  Sender: FDA-Public Use
  Company Number: AT-ROCHE-2924352

PATIENT
  Age: 66 Year
  Sex: Male
  Weight: 79.4 kg

DRUGS (30)
  1. ATEZOLIZUMAB [Suspect]
     Active Substance: ATEZOLIZUMAB
     Indication: Non-small cell lung cancer
     Dosage: ON 19/MAY/2020, RECEIVED THE MOST RECENT DOSE OF BLINDED ATEZOLIZUMAB PRIOR TO DEATH
     Route: 042
     Dates: start: 20200313
  2. ATEZOLIZUMAB [Suspect]
     Active Substance: ATEZOLIZUMAB
     Indication: Non-small cell lung cancer
     Dosage: ON 10/JUN/2021, RECEIVED THE MOST RECENT DOSE OF OPEN LABEL ATEZOLIZUMAB (1200 MG) PRIOR TO DEATH
     Route: 042
     Dates: start: 20201005
  3. CISPLATIN [Suspect]
     Active Substance: CISPLATIN
     Indication: Non-small cell lung cancer
     Dosage: ON 19/MAY/2020, RECEIVED THE MOST RECENT DOSE OF CISPLATIN (147.75 MG, 1200 MG) PRIOR TO DEATH
     Route: 042
     Dates: start: 20200313
  4. GEMCITABINE [Suspect]
     Active Substance: GEMCITABINE
     Indication: Non-small cell lung cancer
     Dosage: ON 27/MAY/2020, RECEIVED THE MOST RECENT DOSE OF GEMCITABIN (2462.5 MG) PRIOR TO DEATH
     Route: 042
     Dates: start: 20200313
  5. ACLIDINIUM BROMIDE\FORMOTEROL FUMARATE [Concomitant]
     Active Substance: ACLIDINIUM BROMIDE\FORMOTEROL FUMARATE
     Indication: Chronic obstructive pulmonary disease
     Dates: start: 20200312
  6. ASPIRIN [Concomitant]
     Active Substance: ASPIRIN
     Dates: start: 20200312
  7. DEXAMETHASONE [Concomitant]
     Active Substance: DEXAMETHASONE
     Route: 048
     Dates: start: 20200314
  8. NOVALGIN (AUSTRIA) [Concomitant]
     Dates: start: 20200316
  9. FUROSEMIDE\SPIRONOLACTONE [Concomitant]
     Active Substance: FUROSEMIDE\SPIRONOLACTONE
     Indication: Hypertension
     Dates: start: 20210218
  10. GEROFOL [Concomitant]
     Dates: start: 20210227
  11. GLUCOPHAGE [Concomitant]
     Active Substance: METFORMIN HYDROCHLORIDE
     Dates: start: 20210217
  12. FUROHEXAL [Concomitant]
     Indication: Hypertension
     Dates: start: 20210226
  13. EDOXABAN TOSYLATE [Concomitant]
     Active Substance: EDOXABAN TOSYLATE
     Dates: start: 20210222
  14. UROSIN (AUSTRIA) [Concomitant]
     Dates: start: 20210219
  15. TRAZODONE HYDROCHLORIDE [Concomitant]
     Active Substance: TRAZODONE HYDROCHLORIDE
     Route: 048
     Dates: start: 20210220
  16. EDOXABAN TOSYLATE [Concomitant]
     Active Substance: EDOXABAN TOSYLATE
     Route: 048
     Dates: start: 20210530
  17. METOPROLOL [Concomitant]
     Active Substance: METOPROLOL
     Indication: Hypertension
     Route: 048
     Dates: start: 202104
  18. PANTOPRAZOLE SODIUM [Concomitant]
     Active Substance: PANTOPRAZOLE SODIUM
     Route: 048
     Dates: start: 202104
  19. LEVETIRACETAM [Concomitant]
     Active Substance: LEVETIRACETAM
     Route: 048
     Dates: start: 20210520
  20. UNASYN [Concomitant]
     Active Substance: AMPICILLIN SODIUM\SULBACTAM SODIUM
     Indication: Chronic obstructive pulmonary disease
     Route: 042
     Dates: start: 20210617, end: 20210629
  21. COMBIVENT [Concomitant]
     Active Substance: ALBUTEROL SULFATE\IPRATROPIUM BROMIDE
     Indication: Chronic obstructive pulmonary disease
     Route: 055
     Dates: start: 20210616
  22. AQUATEARS AU-GEL [Concomitant]
     Route: 047
     Dates: start: 20210616
  23. MUCOBENE [Concomitant]
     Indication: Chronic obstructive pulmonary disease
     Route: 048
     Dates: start: 20210616
  24. BECLOMETHASONE DIPROPIONATE\FORMOTEROL FUMARATE\GLYCOPYRROLATE [Concomitant]
     Active Substance: BECLOMETHASONE DIPROPIONATE\FORMOTEROL FUMARATE\GLYCOPYRROLATE
     Indication: Chronic obstructive pulmonary disease
     Route: 055
     Dates: start: 20210616
  25. PIPERACILLIN [Concomitant]
     Active Substance: PIPERACILLIN
     Indication: Cholecystitis
     Route: 042
     Dates: start: 20210701, end: 20210707
  26. METOPROLOL [Concomitant]
     Active Substance: METOPROLOL
     Indication: Atrial fibrillation
     Route: 048
     Dates: start: 20210626
  27. DEXAMETHASONE [Concomitant]
     Active Substance: DEXAMETHASONE
     Indication: Chronic obstructive pulmonary disease
     Route: 042
     Dates: start: 20210629, end: 20210702
  28. PASPERTIN [Concomitant]
     Indication: Nausea
     Route: 042
     Dates: start: 20210701, end: 20210701
  29. ISOCONAZOLE NITRATE [Concomitant]
     Active Substance: ISOCONAZOLE NITRATE
     Indication: Drug eruption
     Route: 061
     Dates: start: 20210711, end: 20210717
  30. DIFLUCORTOLONE VALERATE\ISOCONAZOLE NITRATE [Concomitant]
     Active Substance: DIFLUCORTOLONE VALERATE\ISOCONAZOLE NITRATE
     Indication: Drug eruption
     Route: 061
     Dates: start: 20210706, end: 20210710

REACTIONS (1)
  - Death [Fatal]

NARRATIVE: CASE EVENT DATE: 20210728
